FAERS Safety Report 6807296-7 (Version None)
Quarter: 2010Q2

REPORT INFORMATION
  Report Type: 
  Country: None (occurrence: None)
  Receive Date: 20100629
  Receipt Date: 20080825
  Transmission Date: 20101027
  Serious: No
  Sender: FDA-Public Use
  Company Number: US-PFIZER INC-2008071452

PATIENT
  Sex: Female

DRUGS (1)
  1. XANAX [Suspect]
     Indication: ANXIETY

REACTIONS (5)
  - HEADACHE [None]
  - HYPERSENSITIVITY [None]
  - NASAL CONGESTION [None]
  - SINUSITIS [None]
  - SWELLING FACE [None]
